FAERS Safety Report 16895624 (Version 1)
Quarter: 2019Q4

REPORT INFORMATION
  Report Type: Spontaneous
  Country: US (occurrence: US)
  Receive Date: 20190814
  Receipt Date: 20190814
  Transmission Date: 20200122
  Serious: Yes (Hospitalization)
  Sender: FDA-Public Use
  Company Number: None

PATIENT
  Age: 67 Year
  Sex: Female

DRUGS (1)
  1. REVLIMID [Suspect]
     Active Substance: LENALIDOMIDE
     Indication: B-CELL LYMPHOMA
     Dosage: ?          OTHER FREQUENCY:DAILY X 21D/28D;?
     Route: 048
     Dates: start: 201807

REACTIONS (3)
  - Pneumonia [None]
  - Therapy cessation [None]
  - Febrile neutropenia [None]

NARRATIVE: CASE EVENT DATE: 20190812
